FAERS Safety Report 9160551 (Version 3)
Quarter: 2013Q2

REPORT INFORMATION
  Report Type: Report from Study
  Country: US (occurrence: US)
  Receive Date: 20130313
  Receipt Date: 20130430
  Transmission Date: 20140414
  Serious: Yes (Hospitalization)
  Sender: FDA-Public Use
  Company Number: US-ABBOTT-13P-163-1054585-00

PATIENT
  Sex: Male
  Weight: 85.81 kg

DRUGS (21)
  1. DEPAKOTE [Suspect]
     Indication: NEURALGIA
  2. METHOTREXATE [Concomitant]
     Indication: PSORIATIC ARTHROPATHY
  3. PREDNISONE [Concomitant]
     Indication: PSORIATIC ARTHROPATHY
  4. FOLIC ACID [Concomitant]
     Indication: LIVER DISORDER
  5. LABETALOL [Concomitant]
     Indication: HEART RATE
  6. LABETALOL [Concomitant]
     Indication: BLOOD PRESSURE
  7. DIAZEPAM [Concomitant]
     Indication: ANXIOLYTIC THERAPY
  8. NITRO STAT [Concomitant]
     Indication: CARDIAC DISORDER
  9. PLAVIX [Concomitant]
     Indication: THROMBOSIS PROPHYLAXIS
  10. FLEXERIL [Concomitant]
     Indication: MYALGIA
  11. FLEXERIL [Concomitant]
     Indication: MUSCLE SPASMS
  12. PHENERGAN [Concomitant]
     Indication: NAUSEA
  13. AMARIL [Concomitant]
     Indication: DIABETES MELLITUS
  14. PROTONIX [Concomitant]
     Indication: DYSPEPSIA
  15. LEUCOVORIN [Concomitant]
     Indication: ADVERSE DRUG REACTION
  16. LASIX [Concomitant]
     Indication: FLUID OVERLOAD
  17. OXYCODONE [Concomitant]
     Indication: PAIN
  18. OXYCONTIN [Concomitant]
     Indication: PAIN
  19. TEMAZEPAM [Concomitant]
     Indication: INSOMNIA
  20. FLAX SEED OIL [Concomitant]
     Indication: PRODUCT USED FOR UNKNOWN INDICATION
  21. VOLTAREN GEL [Concomitant]
     Indication: ARTHRALGIA

REACTIONS (2)
  - Pancreatitis [Unknown]
  - Off label use [Not Recovered/Not Resolved]
